FAERS Safety Report 9482250 (Version 2)
Quarter: 2013Q3

REPORT INFORMATION
  Report Type: Report from Study
  Country: AU (occurrence: AU)
  Receive Date: 20130828
  Receipt Date: 20130909
  Transmission Date: 20140515
  Serious: Yes (Death)
  Sender: FDA-Public Use
  Company Number: AU-ASTELLAS-2013US009115

PATIENT
  Sex: Male

DRUGS (4)
  1. ERLOTINIB TABLET [Suspect]
     Indication: NON-SMALL CELL LUNG CANCER
     Dosage: 150 MG, UID/QD
     Route: 048
     Dates: start: 201305, end: 20130808
  2. CLEXANE [Concomitant]
     Indication: PULMONARY EMBOLISM
     Dosage: 60 MG, BID
     Route: 058
     Dates: start: 201305
  3. KEPPRA [Concomitant]
     Indication: CONVULSION
     Dosage: 500 MG, BID
     Route: 048
     Dates: start: 201305
  4. AMITRIPTYLINE [Concomitant]
     Indication: PRODUCT USED FOR UNKNOWN INDICATION
     Dosage: 50 MG, NOCTI
     Route: 048
     Dates: start: 201305

REACTIONS (1)
  - Malignant neoplasm progression [Fatal]
